FAERS Safety Report 9974575 (Version 1)
Quarter: 2014Q1

REPORT INFORMATION
  Report Type: Report from Study
  Country: US (occurrence: US)
  Receive Date: 20140306
  Receipt Date: 20140306
  Transmission Date: 20141002
  Serious: No
  Sender: FDA-Public Use
  Company Number: US-ABBVIE-13P-163-1159325-00

PATIENT
  Sex: Male

DRUGS (7)
  1. HUMIRA [Suspect]
     Indication: PSORIATIC ARTHROPATHY
  2. TOPROL [Concomitant]
     Indication: HYPERTENSION
  3. LISINOPRIL [Concomitant]
     Indication: HYPERTENSION
  4. NOVOLOG [Concomitant]
     Indication: DIABETES MELLITUS
  5. LEVEMIR [Concomitant]
     Indication: TYPE 2 DIABETES MELLITUS
  6. XANAX [Concomitant]
     Indication: INSOMNIA
  7. VICOPROFEN [Concomitant]
     Indication: PAIN

REACTIONS (1)
  - Inappropriate schedule of drug administration [Unknown]
